FAERS Safety Report 5708061-4 (Version None)
Quarter: 2008Q2

REPORT INFORMATION
  Report Type: 
  Country: None (occurrence: None)
  Receive Date: 20080417
  Receipt Date: 20080414
  Transmission Date: 20081010
  Serious: Yes (Life-Threatening, Hospitalization)
  Sender: FDA-Public Use
  Company Number: BR-ASTRAZENECA-2008UW07746

PATIENT
  Age: 65 Year
  Sex: Female
  Weight: 62 kg

DRUGS (3)
  1. ARIMIDEX [Suspect]
     Indication: BREAST CANCER
     Route: 048
     Dates: start: 20061201
  2. OMEPRAZOLE [Concomitant]
     Route: 048
  3. EUTHYROX [Concomitant]
     Indication: HYPOTHYROIDISM
     Route: 048

REACTIONS (13)
  - ARRHYTHMIA [None]
  - BLOOD POTASSIUM DECREASED [None]
  - BLOOD SODIUM DECREASED [None]
  - DEPRESSION [None]
  - DRUG INEFFECTIVE [None]
  - HAEMATOCRIT DECREASED [None]
  - INSOMNIA [None]
  - KIDNEY ENLARGEMENT [None]
  - OVARIAN CANCER [None]
  - OVARIAN CANCER METASTATIC [None]
  - PYREXIA [None]
  - URETERIC OBSTRUCTION [None]
  - WEIGHT DECREASED [None]
